FAERS Safety Report 10266642 (Version 1)
Quarter: 2014Q2

REPORT INFORMATION
  Report Type: Spontaneous
  Country: US (occurrence: None)
  Receive Date: 20140625
  Receipt Date: 20140625
  Transmission Date: 20141212
  Serious: Yes (Disabling)
  Sender: FDA-Public Use
  Company Number: None

PATIENT
  Age: 67 Year
  Sex: Female
  Weight: 83.92 kg

DRUGS (1)
  1. ZETIA 10 MG TAB MERCK/SCHE [Suspect]
     Indication: BLOOD CHOLESTEROL INCREASED
     Dosage: 1 PILL ONCE DAILY TAKEN BY MOUTH
     Route: 048
     Dates: start: 20080602, end: 20121001

REACTIONS (7)
  - Fatigue [None]
  - Fibromyalgia [None]
  - Fall [None]
  - Muscle injury [None]
  - Hepatic enzyme increased [None]
  - Hepatic steatosis [None]
  - Serum ferritin increased [None]
